FAERS Safety Report 17121543 (Version 2)
Quarter: 2020Q1

REPORT INFORMATION
  Report Type: Spontaneous
  Country: FR (occurrence: FR)
  Receive Date: 20191206
  Receipt Date: 20200116
  Transmission Date: 20200409
  Serious: Yes (Death, Other)
  Sender: FDA-Public Use
  Company Number: FR-009507513-1912FRA002400

PATIENT
  Sex: Female

DRUGS (5)
  1. SOVALDI [Suspect]
     Active Substance: SOFOSBUVIR
     Indication: HEPATITIS C
     Dosage: 400 MILLIGRAM, EVERY 1 DAY
     Dates: start: 20140625, end: 20140923
  2. RIBAVIRIN. [Suspect]
     Active Substance: RIBAVIRIN
     Indication: HEPATITIS C
     Dosage: 500 MILLIGRAM, EVERY 2 DAYS
     Route: 048
     Dates: start: 20040220, end: 20041217
  3. RIBAVIRIN. [Suspect]
     Active Substance: RIBAVIRIN
     Dosage: 300 MILLIGRAM, EVERY 2 DAYS
     Route: 048
     Dates: start: 20050526, end: 20121127
  4. DAKLINZA [Suspect]
     Active Substance: DACLATASVIR
     Indication: HEPATITIS C
     Dosage: 60 MILLIGRAM, EVERY 1 DAY
     Dates: start: 20140625, end: 20140923
  5. VIRAFERONPEG [Suspect]
     Active Substance: PEGINTERFERON ALFA-2B
     Indication: HEPATITIS C
     Dosage: 100 MICROGRAM, EVERY 1 WEEK
     Dates: start: 20040220, end: 20041217

REACTIONS (1)
  - Death [Fatal]

NARRATIVE: CASE EVENT DATE: 2015
